FAERS Safety Report 7434105-8 (Version None)
Quarter: 2011Q2

REPORT INFORMATION
  Report Type: 
  Country: None (occurrence: None)
  Receive Date: 20110415
  Receipt Date: 20110331
  Transmission Date: 20111010
  Serious: Yes (Other)
  Sender: FDA-Public Use
  Company Number: AUR-APL-2011-01165

PATIENT
  Age: 46 Year
  Sex: Female
  Weight: 98 kg

DRUGS (4)
  1. AMLODIPINE [Concomitant]
  2. CITALOPRAM HYDROBROMIDE [Suspect]
     Indication: DEPRESSION
     Dosage: 60MG-DAILY-ORAL
     Route: 048
  3. ORLISTAT [Concomitant]
  4. ACETAMINOPHEN AND CODEINE PHOSPHATE [Concomitant]

REACTIONS (2)
  - LACUNAR INFARCTION [None]
  - CEREBROVASCULAR ACCIDENT [None]
